FAERS Safety Report 21240461 (Version 2)
Quarter: 2022Q4

REPORT INFORMATION
  Report Type: Spontaneous
  Country: US (occurrence: US)
  Receive Date: 20220822
  Receipt Date: 20221025
  Transmission Date: 20230113
  Serious: Yes (Other)
  Sender: FDA-Public Use
  Company Number: US-BIOGEN-2022BI01147536

PATIENT
  Sex: Female

DRUGS (1)
  1. TYSABRI [Suspect]
     Active Substance: NATALIZUMAB
     Indication: Multiple sclerosis
     Route: 050
     Dates: start: 20211030

REACTIONS (4)
  - Cardiac failure congestive [Unknown]
  - Hepatic mass [Unknown]
  - Degenerative aortic valve disease [Unknown]
  - Multiple sclerosis [Not Recovered/Not Resolved]
